FAERS Safety Report 8617554-1 (Version None)
Quarter: 2012Q3

REPORT INFORMATION
  Report Type: 
  Country: None (occurrence: None)
  Receive Date: 20120824
  Receipt Date: 20120125
  Transmission Date: 20120928
  Serious: No
  Sender: FDA-Public Use
  Company Number: US-ASTRAZENECA-2011SE69217

PATIENT
  Age: 80 Year
  Sex: Male
  Weight: 86.2 kg

DRUGS (1)
  1. SYMBICORT [Suspect]
     Indication: CHRONIC OBSTRUCTIVE PULMONARY DISEASE
     Dosage: 160MCG/4.5 MCG TWO PUFFS TWO TIMES A DAY
     Route: 055
     Dates: start: 20090101

REACTIONS (3)
  - DRUG DOSE OMISSION [None]
  - BODY HEIGHT DECREASED [None]
  - ATRIAL FIBRILLATION [None]
